FAERS Safety Report 6638721-2 (Version None)
Quarter: 2010Q1

REPORT INFORMATION
  Report Type: 
  Country: None (occurrence: None)
  Receive Date: 20100316
  Receipt Date: 20100316
  Transmission Date: 20100710
  Serious: Yes (Other)
  Sender: FDA-Public Use
  Company Number: None

PATIENT
  Sex: Female
  Weight: 70.3075 kg

DRUGS (4)
  1. SERTRALINE HYDROCHLORIDE [Suspect]
     Indication: MAJOR DEPRESSION
     Dosage: 200MG DAILY PO
     Route: 048
     Dates: start: 20100215, end: 20100315
  2. SERTRALINE HYDROCHLORIDE [Suspect]
     Indication: PANIC DISORDER
     Dosage: 200MG DAILY PO
     Route: 048
     Dates: start: 20100215, end: 20100315
  3. SERTRALINE HCL [Concomitant]
  4. ZOLOFT [Concomitant]

REACTIONS (9)
  - CRYING [None]
  - DECREASED APPETITE [None]
  - DIARRHOEA [None]
  - DIZZINESS [None]
  - INSOMNIA [None]
  - MIDDLE INSOMNIA [None]
  - PANIC ATTACK [None]
  - PRODUCT SUBSTITUTION ISSUE [None]
  - RASH [None]
